FAERS Safety Report 11155508 (Version 1)
Quarter: 2015Q2

REPORT INFORMATION
  Report Type: Spontaneous
  Country: US (occurrence: None)
  Receive Date: 20150601
  Receipt Date: 20150601
  Transmission Date: 20150821
  Serious: Yes (Life-Threatening)
  Sender: FDA-Public Use
  Company Number: None

PATIENT
  Age: 62 Year
  Sex: Male

DRUGS (2)
  1. IOPAMIDOL [Suspect]
     Active Substance: IOPAMIDOL
     Indication: SURGERY
     Dates: start: 20150505, end: 20150505
  2. IOPAMIDOL [Suspect]
     Active Substance: IOPAMIDOL
     Indication: CARDIOVASCULAR DISORDER
     Dates: start: 20150505, end: 20150505

REACTIONS (4)
  - Haemoglobin decreased [None]
  - Acute myocardial infarction [None]
  - Contrast media reaction [None]
  - Anaphylactic reaction [None]

NARRATIVE: CASE EVENT DATE: 20150506
